APPROVED DRUG PRODUCT: LIDOCAINE
Active Ingredient: LIDOCAINE
Strength: 5%
Dosage Form/Route: OINTMENT;TOPICAL
Application: A211697 | Product #001 | TE Code: AT
Applicant: MACLEODS PHARMACEUTICALS LTD
Approved: Mar 16, 2020 | RLD: No | RS: No | Type: RX